FAERS Safety Report 10440174 (Version 1)
Quarter: 2014Q3

REPORT INFORMATION
  Report Type: Spontaneous
  Country: FR (occurrence: FR)
  Receive Date: 20140908
  Receipt Date: 20140908
  Transmission Date: 20150326
  Serious: Yes (Hospitalization)
  Sender: FDA-Public Use
  Company Number: FR-TEVA-506590ISR

PATIENT
  Age: 86 Year
  Sex: Male

DRUGS (1)
  1. TRAMADOL TEVA [Suspect]
     Active Substance: TRAMADOL
     Indication: PAIN
     Dates: start: 20140122

REACTIONS (5)
  - Movement disorder [Unknown]
  - Head discomfort [Unknown]
  - Vertigo [Unknown]
  - Balance disorder [Unknown]
  - Fall [Unknown]

NARRATIVE: CASE EVENT DATE: 2014
